FAERS Safety Report 9060778 (Version 2)
Quarter: 2013Q1

REPORT INFORMATION
  Report Type: Spontaneous
  Country: JP (occurrence: JP)
  Receive Date: 20130204
  Receipt Date: 20130301
  Transmission Date: 20140127
  Serious: Yes (Hospitalization, Other)
  Sender: FDA-Public Use
  Company Number: JP-TEVA-383701ISR

PATIENT
  Age: 70 Year
  Sex: Male

DRUGS (4)
  1. CISPLATIN [Suspect]
     Indication: RECTAL CANCER
     Dosage: 50 MILLIGRAM DAILY;
  2. FLUOROURACIL [Suspect]
     Indication: RECTAL CANCER
     Dosage: 1500 MILLIGRAM DAILY;
  3. CALCIUM LEVOFOLINATE [Suspect]
     Indication: RECTAL CANCER
     Dosage: 250 MILLIGRAM DAILY;
  4. IRINOTECAN HYDROCHLORIDE [Suspect]
     Indication: RECTAL CANCER
     Dosage: 40 MILLIGRAM DAILY;

REACTIONS (4)
  - Intestinal obstruction [Unknown]
  - Malignant ascites [Unknown]
  - Decreased appetite [Unknown]
  - Nausea [Unknown]
